FAERS Safety Report 7240992-9 (Version None)
Quarter: 2011Q1

REPORT INFORMATION
  Report Type: 
  Country: None (occurrence: None)
  Receive Date: 20110112
  Receipt Date: 20101222
  Transmission Date: 20110831
  Serious: Yes (Hospitalization, Disabling)
  Sender: FDA-Public Use
  Company Number: 003-043

PATIENT
  Age: 59 Year
  Sex: Male
  Weight: 102.0593 kg

DRUGS (2)
  1. CROFAB [Suspect]
     Indication: SNAKE BITE
     Dosage: 33 VIALS IV
     Route: 042
     Dates: start: 20101107, end: 20101121
  2. CROFAB [Suspect]

REACTIONS (7)
  - DRUG INEFFECTIVE [None]
  - FINGER AMPUTATION [None]
  - EPISTAXIS [None]
  - NEPHROLITHIASIS [None]
  - RENAL FAILURE [None]
  - NERVE INJURY [None]
  - LOCALISED INFECTION [None]
